FAERS Safety Report 5328263-9 (Version None)
Quarter: 2007Q2

REPORT INFORMATION
  Report Type: 
  Country: None (occurrence: None)
  Receive Date: 20070516
  Receipt Date: 20070516
  Transmission Date: 20071010
  Serious: Yes (Hospitalization)
  Sender: FDA-Public Use
  Company Number: None

PATIENT
  Sex: Female
  Weight: 13.1 kg

DRUGS (2)
  1. GAMUNEX [Suspect]
     Indication: KAWASAKI'S DISEASE
     Dosage: 25 GM ONCE A DAY X 3 DAY IV
     Route: 042
     Dates: start: 20070421, end: 20070426
  2. GAMUNEX [Suspect]
     Indication: KAWASAKI'S DISEASE
     Dates: start: 20070421, end: 20070426

REACTIONS (3)
  - HAEMATOCRIT DECREASED [None]
  - HAEMOGLOBIN DECREASED [None]
  - RED BLOOD CELL SPHEROCYTES PRESENT [None]
